FAERS Safety Report 23344599 (Version 4)
Quarter: 2025Q4

REPORT INFORMATION
  Report Type: Spontaneous
  Country: US (occurrence: US)
  Receive Date: 20231228
  Receipt Date: 20251222
  Transmission Date: 20260118
  Serious: Yes (Death, Hospitalization, Other)
  Sender: NOVO NORDISK
  Company Number: US-NOVOPROD-1155170

PATIENT
  Age: 76 Year
  Sex: Male

DRUGS (2)
  1. OZEMPIC [Suspect]
     Active Substance: SEMAGLUTIDE
     Indication: Weight control
  2. OZEMPIC [Suspect]
     Active Substance: SEMAGLUTIDE
     Indication: Type 2 diabetes mellitus
     Dosage: 0.5 MG, QW
     Dates: start: 20230708, end: 20230805

REACTIONS (11)
  - Acute hepatic failure [Fatal]
  - Bile duct stone [Fatal]
  - Gastrointestinal haemorrhage [Fatal]
  - Acute kidney injury [Fatal]
  - Surgery [Recovered/Resolved]
  - Sepsis [Recovered/Resolved]
  - Pancreatitis [Recovered/Resolved]
  - Constipation [Recovered/Resolved]
  - Anxiety [Unknown]
  - Depression [Unknown]
  - Off label use [Unknown]

NARRATIVE: CASE EVENT DATE: 20230708
